FAERS Safety Report 23410241 (Version 2)
Quarter: 2024Q4

REPORT INFORMATION
  Report Type: Spontaneous
  Country: FR (occurrence: FR)
  Receive Date: 20240117
  Receipt Date: 20241224
  Transmission Date: 20250115
  Serious: Yes (Hospitalization)
  Sender: CHATTEM
  Company Number: None

PATIENT
  Age: 44 Year
  Sex: Female
  Weight: 165 kg

DRUGS (9)
  1. LIDOCAINE [Suspect]
     Active Substance: LIDOCAINE
     Indication: General anaesthesia
     Dosage: 20 MG, 1X
     Route: 042
     Dates: start: 20230903, end: 20230903
  2. KETOPROFEN [Suspect]
     Active Substance: KETOPROFEN
     Indication: Perioperative analgesia
     Dosage: 100 MG, 1X
     Route: 042
     Dates: start: 20230903, end: 20230903
  3. DEXAMETHASONE [Suspect]
     Active Substance: DEXAMETHASONE
     Indication: Perioperative analgesia
     Dosage: 8 MG, 1X
     Route: 042
     Dates: start: 20230903, end: 20230903
  4. CEFAZOLIN [Suspect]
     Active Substance: CEFAZOLIN
     Indication: Antibiotic prophylaxis
     Dosage: 2 G, 1X
     Route: 042
     Dates: start: 20230903, end: 20230903
  5. SUFENTANIL [Suspect]
     Active Substance: SUFENTANIL
     Indication: General anaesthesia
     Dosage: 5 UG, 1X
     Route: 042
     Dates: start: 20230903, end: 20230903
  6. ROCURONIUM BROMIDE [Suspect]
     Active Substance: ROCURONIUM BROMIDE
     Indication: General anaesthesia
     Dosage: 70 MG, 1X
     Route: 042
     Dates: start: 20230903, end: 20230903
  7. PROPOFOL [Suspect]
     Active Substance: PROPOFOL
     Indication: General anaesthesia
     Dosage: 200 MG, 1X
     Route: 042
     Dates: start: 20230903, end: 20230903
  8. BRIDION [Suspect]
     Active Substance: SUGAMMADEX
     Indication: General anaesthesia
     Dosage: 140 MG, 1X
     Route: 042
     Dates: start: 20230903, end: 20230903
  9. KETAMINE HYDROCHLORIDE [Suspect]
     Active Substance: KETAMINE HYDROCHLORIDE
     Indication: General anaesthesia
     Dosage: 20 MG, 1X
     Route: 042
     Dates: start: 20230903, end: 20230903

REACTIONS (1)
  - Rash maculo-papular [Recovered/Resolved]

NARRATIVE: CASE EVENT DATE: 20230904
